FAERS Safety Report 4335137-9 (Version None)
Quarter: 2004Q1

REPORT INFORMATION
  Report Type: 
  Country: None (occurrence: None)
  Receive Date: 20040329
  Receipt Date: 20040123
  Transmission Date: 20041129
  Serious: No
  Sender: FDA-Public Use
  Company Number: 04P-163-0248427-00

PATIENT
  Age: 35 Year
  Sex: Female
  Weight: 122.4712 kg

DRUGS (8)
  1. HUMIRA [Suspect]
     Indication: JUVENILE ARTHRITIS
     Dosage: 40 MG, 1 IN 2 WK, SUBCUTANEOUS
     Route: 058
     Dates: start: 20031001
  2. METHOTREXATE [Concomitant]
  3. HYDROXYCHLOROQUINE SULFATE [Concomitant]
  4. NAPROXEN [Concomitant]
  5. CONLUNETT [Concomitant]
  6. MULTI-VITAMINS [Concomitant]
  7. LEXAPRO [Concomitant]
  8. BUPROPION HYDROCHLORIDE [Concomitant]

REACTIONS (3)
  - DYSPNOEA [None]
  - FATIGUE [None]
  - HYPERSOMNIA [None]
